FAERS Safety Report 4987996-4 (Version None)
Quarter: 2006Q2

REPORT INFORMATION
  Report Type: 
  Country: None (occurrence: None)
  Receive Date: 20060426
  Receipt Date: 20060417
  Transmission Date: 20061013
  Serious: Yes (Hospitalization, Other)
  Sender: FDA-Public Use
  Company Number: 2004028745

PATIENT
  Age: 60 Year
  Sex: Male

DRUGS (12)
  1. LIPITOR [Suspect]
     Indication: DYSLIPIDAEMIA
     Dosage: 40 MG (DAILY), ORAL
     Route: 048
     Dates: start: 20040401
  2. CAPTOPRIL [Concomitant]
  3. MONOCORDIL (ISOSORBIDE MONOITRATE) [Concomitant]
  4. TICLOPIDINE (TICLOPIDINE) [Concomitant]
  5. CARVEDILOL [Concomitant]
  6. ENALAPRIL MALEATE [Concomitant]
  7. HIGROTON (CHLORTALIDONE) [Concomitant]
  8. WARFARIN (WARFAIN) [Concomitant]
  9. ASPIRIN [Concomitant]
  10. ISOSORBIDE MONONITRATE [Concomitant]
  11. ATENOLOL [Concomitant]
  12. AMLODIPINE [Concomitant]

REACTIONS (8)
  - ARRHYTHMIA [None]
  - ARTERIAL DISORDER [None]
  - ARTERIAL OCCLUSIVE DISEASE [None]
  - ATRIAL FIBRILLATION [None]
  - ATRIAL FLUTTER [None]
  - LIPIDS DECREASED [None]
  - MYOCARDIAL INFARCTION [None]
  - VENTRICULAR TACHYCARDIA [None]
